FAERS Safety Report 8901582 (Version 1)
Quarter: 2012Q4

REPORT INFORMATION
  Report Type: Spontaneous
  Country: MX (occurrence: None)
  Receive Date: 20121105
  Receipt Date: 20121105
  Transmission Date: 20130627
  Serious: Yes (Death)
  Sender: FDA-Public Use
  Company Number: 21485

PATIENT
  Age: 66 Year
  Sex: Female

DRUGS (2)
  1. STALEVO (LEVODOPA, CARBIDOPA, ENTACAPONE) [Suspect]
     Indication: PARKINSON^S DISEASE
     Dosage: 100/25/200 MG, 2 TABLETS PER DAY
  2. METFORMIN [Concomitant]

REACTIONS (1)
  - Death [None]
